APPROVED DRUG PRODUCT: KALYDECO
Active Ingredient: IVACAFTOR
Strength: 13.4MG/PACKET
Dosage Form/Route: GRANULE;ORAL
Application: N207925 | Product #005
Applicant: VERTEX PHARMACEUTICALS INC
Approved: May 3, 2023 | RLD: Yes | RS: No | Type: RX

PATENTS:
Patent 11564916 | Expires: Aug 13, 2029
Patent 11147770 | Expires: Feb 27, 2033
Patent 10272046 | Expires: Feb 27, 2033
Patent 9670163 | Expires: Dec 28, 2026
Patent 8354427 | Expires: Jul 6, 2026
Patent 8324242 | Expires: Aug 5, 2027
Patent 12458635 | Expires: Aug 13, 2029
Patent 12214083 | Expires: Feb 27, 2033
Patent 11752106 | Expires: Feb 27, 2033
Patent 7495103 | Expires: May 20, 2027
Patent 8410274 | Expires: Dec 28, 2026
Patent 10646481 | Expires: Aug 13, 2029
Patent 8883206 | Expires: Feb 27, 2033
Patent 8754224 | Expires: Dec 28, 2026
Patent 11752106*PED | Expires: Aug 27, 2033
Patent 12214083*PED | Expires: Aug 27, 2033
Patent 11564916*PED | Expires: Feb 13, 2030
Patent 11147770*PED | Expires: Aug 27, 2033
Patent 10646481*PED | Expires: Feb 13, 2030
Patent 10272046*PED | Expires: Aug 27, 2033
Patent 9670163*PED | Expires: Jun 28, 2027
Patent 8883206*PED | Expires: Aug 27, 2033
Patent 8754224*PED | Expires: Jun 28, 2027
Patent 12458635*PED | Expires: Feb 13, 2030
Patent 8410274*PED | Expires: Jun 28, 2027
Patent 8354427*PED | Expires: Jan 6, 2027
Patent 8324242*PED | Expires: Feb 5, 2028
Patent 7495103*PED | Expires: Nov 20, 2027

EXCLUSIVITY:
Code: M-14 | Date: May 22, 2028
Code: NPP | Date: May 3, 2026
Code: ODE-435 | Date: May 3, 2030
Code: PED | Date: Nov 3, 2030
Code: PED | Date: Nov 3, 2026
Code: PED | Date: Nov 22, 2028